FAERS Safety Report 16612561 (Version 1)
Quarter: 2019Q3

REPORT INFORMATION
  Report Type: Spontaneous
  Country: US (occurrence: US)
  Receive Date: 20190722
  Receipt Date: 20190722
  Transmission Date: 20191004
  Serious: No
  Sender: FDA-Public Use
  Company Number: None

PATIENT
  Age: 69 Year
  Sex: Male
  Weight: 63 kg

DRUGS (1)
  1. RITUXAN [Suspect]
     Active Substance: RITUXIMAB
     Indication: NON-HODGKIN^S LYMPHOMA
     Dosage: ?          OTHER FREQUENCY:WEEKLY X4 2X/YR;?
     Route: 041
     Dates: start: 20190701

REACTIONS (2)
  - Infusion related reaction [None]
  - Chills [None]

NARRATIVE: CASE EVENT DATE: 20190722
